FAERS Safety Report 6190440-5 (Version None)
Quarter: 2009Q2

REPORT INFORMATION
  Report Type: 
  Country: None (occurrence: None)
  Receive Date: 20090514
  Receipt Date: 20090513
  Transmission Date: 20091009
  Serious: Yes (Other)
  Sender: FDA-Public Use
  Company Number: IT-BRISTOL-MYERS SQUIBB COMPANY-14589147

PATIENT
  Age: 21 Year
  Sex: Male

DRUGS (2)
  1. FUNGIZONE L INJECTION 50MG [Suspect]
     Indication: ANTIFUNGAL TREATMENT
  2. CASPOFUNGIN ACETATE [Suspect]
     Indication: ANTIFUNGAL TREATMENT

REACTIONS (3)
  - DRUG INEFFECTIVE [None]
  - HYPOKALAEMIA [None]
  - PROTEINURIA [None]
